FAERS Safety Report 4366285-5 (Version None)
Quarter: 2004Q2

REPORT INFORMATION
  Report Type: 
  Country: None (occurrence: None)
  Receive Date: 20040524
  Receipt Date: 20040302
  Transmission Date: 20050107
  Serious: No
  Sender: FDA-Public Use
  Company Number: SU-2004-002191

PATIENT
  Sex: Male

DRUGS (1)
  1. BENICAR [Suspect]
     Indication: HYPERTENSION
     Dosage: 5 MG OQ PO
     Route: 048

REACTIONS (1)
  - DRUG INEFFECTIVE [None]
